FAERS Safety Report 6231691-0 (Version None)
Quarter: 2009Q2

REPORT INFORMATION
  Report Type: 
  Country: None (occurrence: None)
  Receive Date: 20090616
  Receipt Date: 20090603
  Transmission Date: 20091009
  Serious: Yes (Hospitalization, Other)
  Sender: FDA-Public Use
  Company Number: IT-ELI_LILLY_AND_COMPANY-IT200906000979

PATIENT
  Age: 68 Year
  Sex: Female

DRUGS (9)
  1. ZYPREXA [Suspect]
     Indication: BIPOLAR DISORDER
     Dosage: 20 MG, DAILY (1/D)
     Dates: start: 20030101
  2. ZYPREXA [Suspect]
     Dosage: 20 MG, DAILY (1/D)
     Dates: start: 20090101, end: 20090101
  3. ZYPREXA [Suspect]
     Dosage: 10 MG, DAILY (1/D)
     Dates: start: 20090101, end: 20090101
  4. ZYPREXA [Suspect]
     Dosage: 5 MG, DAILY (1/D)
     Dates: start: 20090101, end: 20090101
  5. ZYPREXA [Suspect]
     Dosage: 2.5 MG, DAILY (1/D)
     Dates: start: 20090101, end: 20090201
  6. TAVOR [Concomitant]
     Indication: INSOMNIA
     Dosage: 2 MG, UNK
  7. ZOLPIDEM TARTRATE [Concomitant]
     Dates: start: 20090101
  8. MIRAPEX [Concomitant]
     Dates: start: 20090101
  9. EUTIMIL [Concomitant]
     Dates: start: 20090101

REACTIONS (5)
  - BIPOLAR DISORDER [None]
  - GALACTORRHOEA [None]
  - PRURITUS GENERALISED [None]
  - URINARY RETENTION [None]
  - WEIGHT INCREASED [None]
